FAERS Safety Report 7286456-8 (Version None)
Quarter: 2011Q1

REPORT INFORMATION
  Report Type: 
  Country: None (occurrence: None)
  Receive Date: 20110210
  Receipt Date: 20110207
  Transmission Date: 20110831
  Serious: Yes (Other)
  Sender: FDA-Public Use
  Company Number: IN-PFIZER INC-2011027052

PATIENT
  Age: 4 Year
  Sex: Male
  Weight: 15 kg

DRUGS (1)
  1. ONDANSETRON HCL [Suspect]
     Indication: VOMITING
     Dosage: 2 MG, SINGLE
     Route: 042

REACTIONS (4)
  - DYSTONIA [None]
  - HYPOGLYCAEMIA [None]
  - GRAND MAL CONVULSION [None]
  - SOMNOLENCE [None]
